FAERS Safety Report 9460371 (Version 1)
Quarter: 2013Q3

REPORT INFORMATION
  Report Type: Spontaneous
  Country: DK (occurrence: AU)
  Receive Date: 20130815
  Receipt Date: 20130815
  Transmission Date: 20140515
  Serious: Yes (Hospitalization)
  Sender: FDA-Public Use
  Company Number: AU-FRI-1000047798

PATIENT
  Age: 65 Year
  Sex: Male

DRUGS (7)
  1. ESCITALOPRAM [Suspect]
     Dosage: 10 MG
     Route: 048
  2. NITRAZEPAM [Suspect]
     Dosage: 5 MG
     Route: 048
  3. SOTALOL HYDROCHLORIDE [Concomitant]
     Dosage: 320 MG
     Route: 048
  4. CANDESARTAN HYDROCHLOROTHIAZIDE [Concomitant]
     Dosage: 32 MG
     Route: 048
  5. LANSOPRAZOLE [Concomitant]
     Dosage: 30 MG
     Route: 048
  6. PARACETAMOL-CODEINE PHOSPHATE [Concomitant]
  7. WARFARIN SODIUM [Concomitant]
     Dosage: 6.5 MG
     Route: 048

REACTIONS (2)
  - Encephalitis autoimmune [Recovering/Resolving]
  - Inappropriate antidiuretic hormone secretion [Recovering/Resolving]
